FAERS Safety Report 15379176 (Version 1)
Quarter: 2018Q3

REPORT INFORMATION
  Report Type: Spontaneous
  Country: US (occurrence: US)
  Receive Date: 20180906
  Receipt Date: 20180906
  Transmission Date: 20181010
  Serious: Yes (Death)
  Sender: FDA-Public Use
  Company Number: None

PATIENT
  Age: 61 Year
  Sex: Female
  Weight: 84.82 kg

DRUGS (9)
  1. ADVAIR HFA [Concomitant]
     Active Substance: FLUTICASONE PROPIONATE\SALMETEROL XINAFOATE
  2. PROAIR HFA [Concomitant]
     Active Substance: ALBUTEROL SULFATE
  3. NIFEDIPINE. [Concomitant]
     Active Substance: NIFEDIPINE
  4. GABAPENTIN. [Concomitant]
     Active Substance: GABAPENTIN
  5. XELODA [Suspect]
     Active Substance: CAPECITABINE
     Indication: METASTASIS
     Route: 048
     Dates: start: 20180717, end: 20180828
  6. TYLENOL [Concomitant]
     Active Substance: ACETAMINOPHEN
  7. CARVEDILOL. [Concomitant]
     Active Substance: CARVEDILOL
  8. XARELTO [Concomitant]
     Active Substance: RIVAROXABAN
  9. CONIDINE [Concomitant]

REACTIONS (1)
  - Death [None]

NARRATIVE: CASE EVENT DATE: 20180828
